FAERS Safety Report 4536954-2 (Version None)
Quarter: 2004Q4

REPORT INFORMATION
  Report Type: 
  Country: None (occurrence: None)
  Receive Date: 20041220
  Receipt Date: 20041203
  Transmission Date: 20050328
  Serious: Yes (Disabling)
  Sender: FDA-Public Use
  Company Number: 200421080BWH

PATIENT
  Age: 46 Year
  Sex: Female
  Weight: 52.1637 kg

DRUGS (4)
  1. AVELOX [Suspect]
     Indication: SINUSITIS
     Dosage: 400 MG, QD, ORAL
     Route: 048
     Dates: start: 20041030, end: 20041106
  2. ZYRTEC [Concomitant]
  3. PAXIL [Concomitant]
  4. RHINOCORT [Concomitant]

REACTIONS (2)
  - DEAFNESS BILATERAL [None]
  - TINNITUS [None]
